FAERS Safety Report 23224313 (Version 1)
Quarter: 2023Q4

REPORT INFORMATION
  Report Type: Spontaneous
  Country: US (occurrence: US)
  Receive Date: 20231124
  Receipt Date: 20231124
  Transmission Date: 20240110
  Serious: Yes (Death, Hospitalization, Other)
  Sender: FDA-Public Use
  Company Number: US-GLAXOSMITHKLINE-USCH2023AMR057971

PATIENT

DRUGS (1)
  1. TERBINAFINE HYDROCHLORIDE [Suspect]
     Active Substance: TERBINAFINE HYDROCHLORIDE
     Indication: Onychomycosis
     Dosage: UNK

REACTIONS (9)
  - Death [Fatal]
  - Muscular weakness [Unknown]
  - Renal impairment [Unknown]
  - Hepatic function abnormal [Unknown]
  - Rhabdomyolysis [Unknown]
  - Drug-induced liver injury [Unknown]
  - Acute kidney injury [Unknown]
  - Acute hepatic failure [Unknown]
  - Ill-defined disorder [Unknown]
